FAERS Safety Report 4398156-2 (Version None)
Quarter: 2004Q3

REPORT INFORMATION
  Report Type: 
  Country: None (occurrence: None)
  Receive Date: 20040713
  Receipt Date: 20040628
  Transmission Date: 20050211
  Serious: Yes (Hospitalization)
  Sender: FDA-Public Use
  Company Number: 2004216105GB

PATIENT
  Age: 40 Year
  Sex: Female
  Weight: 89 kg

DRUGS (9)
  1. SULFASALAZINE [Suspect]
     Indication: PSORIATIC ARTHROPATHY
     Dosage: SEE IMAGE
     Route: 048
     Dates: start: 20040425
  2. SULFASALAZINE [Suspect]
     Indication: PSORIATIC ARTHROPATHY
     Dosage: SEE IMAGE
     Route: 048
     Dates: start: 20040522
  3. OMEPRAZOLE [Concomitant]
  4. CO-PROXAMOL (DEXTROPROPOXYPHENE HYDROCHLORIDE) [Concomitant]
  5. FERROUS SULFATE TAB [Concomitant]
  6. NAXOPREN [Concomitant]
  7. FESOX [Concomitant]
  8. DEPO-MEDROL [Concomitant]
  9. TRAMADOL [Concomitant]

REACTIONS (4)
  - CONDITION AGGRAVATED [None]
  - PSORIASIS [None]
  - RASH ERYTHEMATOUS [None]
  - RASH PRURITIC [None]
